FAERS Safety Report 6046866-3 (Version None)
Quarter: 2009Q1

REPORT INFORMATION
  Report Type: 
  Country: None (occurrence: None)
  Receive Date: 20090122
  Receipt Date: 20090116
  Transmission Date: 20090719
  Serious: Yes (Other)
  Sender: FDA-Public Use
  Company Number: A0764580A

PATIENT
  Age: 69 Year
  Sex: Male
  Weight: 79.1 kg

DRUGS (3)
  1. AVANDIA [Suspect]
     Dosage: 8MG TWICE PER DAY
     Route: 048
     Dates: start: 20000101, end: 20070101
  2. GLYBURIDE [Concomitant]
  3. SIMVASTATIN [Concomitant]

REACTIONS (4)
  - CARDIAC DISORDER [None]
  - CARDIAC OPERATION [None]
  - OVERWEIGHT [None]
  - PAIN [None]
